FAERS Safety Report 14673306 (Version 5)
Quarter: 2020Q4

REPORT INFORMATION
  Report Type: Spontaneous
  Country: FR (occurrence: FR)
  Receive Date: 20180323
  Receipt Date: 20201127
  Transmission Date: 20210113
  Serious: Yes (Death, Other)
  Sender: FDA-Public Use
  Company Number: FR-SUN PHARMACEUTICAL INDUSTRIES LTD-2018RR-166452

PATIENT
  Age: 16 Year
  Sex: Male

DRUGS (32)
  1. TEMOZOLOMIDE. [Suspect]
     Active Substance: TEMOZOLOMIDE
     Indication: METASTASES TO BONE
     Dosage: 150 MG/M2, DAILY, FIRST CYCLE
     Route: 048
  2. CISPLATIN. [Suspect]
     Active Substance: CISPLATIN
     Indication: METASTASES TO BONE
     Route: 065
  3. ETOPOSIDE. [Suspect]
     Active Substance: ETOPOSIDE
     Indication: METASTASES TO BONE
  4. ITRACONAZOLE. [Suspect]
     Active Substance: ITRACONAZOLE
     Indication: MEDULLOBLASTOMA RECURRENT
     Dosage: 150 MG, BID
     Route: 065
     Dates: start: 201510
  5. SONIDEGIB [Suspect]
     Active Substance: SONIDEGIB
     Dosage: 800 MG, QD
     Route: 065
     Dates: end: 20161102
  6. TEMOZOLOMIDE. [Suspect]
     Active Substance: TEMOZOLOMIDE
     Dosage: 200 MG/M2, DAILY
     Route: 048
     Dates: end: 201608
  7. CARBOPLATIN. [Suspect]
     Active Substance: CARBOPLATIN
     Indication: METASTASES TO BONE
  8. IRINOTECAN [Suspect]
     Active Substance: IRINOTECAN
     Indication: METASTASES TO BONE
  9. VISMODEGIB. [Suspect]
     Active Substance: VISMODEGIB
     Indication: MEDULLOBLASTOMA RECURRENT
     Dosage: 150 MG, QD
     Route: 048
     Dates: start: 20150128
  10. THIOTEPA. [Suspect]
     Active Substance: THIOTEPA
  11. TEMOZOLOMIDE. [Suspect]
     Active Substance: TEMOZOLOMIDE
     Indication: METASTASES TO BONE MARROW
     Dosage: UNK
     Route: 048
  12. CISPLATIN. [Suspect]
     Active Substance: CISPLATIN
     Indication: METASTASES TO BONE MARROW
     Route: 065
  13. CYCLOPHOSPHAMIDE. [Suspect]
     Active Substance: CYCLOPHOSPHAMIDE
     Indication: METASTASES TO BONE
  14. BUSULFAN. [Suspect]
     Active Substance: BUSULFAN
     Indication: METASTASES TO BONE MARROW
     Route: 065
  15. MORPHINE [Concomitant]
     Active Substance: MORPHINE
     Indication: PAIN
     Route: 065
  16. SONIDEGIB [Suspect]
     Active Substance: SONIDEGIB
     Dosage: 400 MG, QD
     Route: 065
  17. CELECOXIB. [Suspect]
     Active Substance: CELECOXIB
     Indication: PRODUCT USED FOR UNKNOWN INDICATION
  18. IRINOTECAN [Suspect]
     Active Substance: IRINOTECAN
     Indication: METASTASES TO BONE MARROW
     Route: 065
  19. CISPLATIN. [Suspect]
     Active Substance: CISPLATIN
     Route: 065
  20. ETOPOSIDE. [Suspect]
     Active Substance: ETOPOSIDE
     Indication: METASTASES TO BONE MARROW
     Dosage: UNK
     Route: 065
     Dates: end: 201212
  21. ETOPOSIDE. [Suspect]
     Active Substance: ETOPOSIDE
     Indication: METASTASES TO BONE
  22. BUSULFAN. [Suspect]
     Active Substance: BUSULFAN
     Indication: METASTASES TO BONE
  23. MORPHINE [Concomitant]
     Active Substance: MORPHINE
     Route: 065
  24. THIOTEPA. [Suspect]
     Active Substance: THIOTEPA
  25. THIOTEPA. [Suspect]
     Active Substance: THIOTEPA
  26. TEMOZOLOMIDE. [Suspect]
     Active Substance: TEMOZOLOMIDE
     Indication: MEDULLOBLASTOMA RECURRENT
     Dosage: UNK
     Route: 065
     Dates: end: 201212
  27. CELECOXIB. [Suspect]
     Active Substance: CELECOXIB
     Indication: PRODUCT USED FOR UNKNOWN INDICATION
     Dosage: UNK
     Route: 065
     Dates: end: 201212
  28. CISPLATIN. [Suspect]
     Active Substance: CISPLATIN
     Indication: METASTASES TO BONE
  29. CYCLOPHOSPHAMIDE. [Suspect]
     Active Substance: CYCLOPHOSPHAMIDE
     Indication: METASTASES TO BONE MARROW
     Dosage: UNK
     Route: 065
     Dates: end: 201212
  30. SONIDEGIB [Suspect]
     Active Substance: SONIDEGIB
     Indication: MEDULLOBLASTOMA RECURRENT
     Dosage: 400 MG, QD
     Route: 065
     Dates: start: 20160909
  31. CARBOPLATIN. [Suspect]
     Active Substance: CARBOPLATIN
     Indication: METASTASES TO BONE MARROW
     Route: 065
  32. BUSULFAN. [Suspect]
     Active Substance: BUSULFAN
     Indication: METASTASES TO BONE

REACTIONS (16)
  - Disease progression [Fatal]
  - Therapeutic product effect incomplete [Unknown]
  - Diarrhoea [Unknown]
  - C-reactive protein increased [Unknown]
  - Drug ineffective [Unknown]
  - Blood creatine phosphokinase increased [Unknown]
  - Dysgeusia [Unknown]
  - Pain [Unknown]
  - Acquired gene mutation [Unknown]
  - Hypoaesthesia [Unknown]
  - Muscle spasms [Unknown]
  - Vomiting [Unknown]
  - Disease recurrence [Unknown]
  - Alopecia [Unknown]
  - Paraparesis [Unknown]
  - Urinary retention [Unknown]

NARRATIVE: CASE EVENT DATE: 20161102
